FAERS Safety Report 24818072 (Version 1)
Quarter: 2025Q1

REPORT INFORMATION
  Report Type: Spontaneous
  Country: US (occurrence: US)
  Receive Date: 20250108
  Receipt Date: 20250108
  Transmission Date: 20250409
  Serious: Yes (Life-Threatening, Hospitalization, Other)
  Sender: DR REDDYS
  Company Number: US-DRL-USA-USA/2025/01/000244

PATIENT
  Age: 61 Year
  Sex: Male

DRUGS (1)
  1. METHAMPHETAMINE [Suspect]
     Active Substance: METHAMPHETAMINE
     Indication: Product used for unknown indication

REACTIONS (6)
  - Intestinal ischaemia [Unknown]
  - Septic shock [Unknown]
  - Ischaemic hepatitis [Unknown]
  - Rhabdomyolysis [Unknown]
  - Renal failure [Unknown]
  - Drug abuse [Unknown]
